FAERS Safety Report 23384269 (Version 1)
Quarter: 2024Q1

REPORT INFORMATION
  Report Type: Spontaneous
  Country: GB (occurrence: GB)
  Receive Date: 20240109
  Receipt Date: 20240109
  Transmission Date: 20240410
  Serious: Yes (Death, Other)
  Sender: FDA-Public Use
  Company Number: None

PATIENT
  Age: 44 Year
  Sex: Female

DRUGS (23)
  1. COCODAMOL [Suspect]
     Active Substance: ACETAMINOPHEN\CODEINE PHOSPHATE
     Indication: Analgesic therapy
     Dosage: 28 DOSAGE FORM, QD [112 TABLET, FOR TWO WEEKS]
     Route: 048
  2. COCODAMOL [Suspect]
     Active Substance: ACETAMINOPHEN\CODEINE PHOSPHATE
     Indication: Analgesic therapy
     Dosage: 28 DOSAGE FORM, ONCE A DAY
     Route: 048
  3. COCODAMOL [Suspect]
     Active Substance: ACETAMINOPHEN\CODEINE PHOSPHATE
     Dosage: 28 DOSAGE FORM, ONCE A DAY
     Route: 048
  4. COCODAMOL [Suspect]
     Active Substance: ACETAMINOPHEN\CODEINE PHOSPHATE
     Dosage: 28 DOSAGE FORM, ONCE A DAY
     Route: 048
  5. MORPHINE [Suspect]
     Active Substance: MORPHINE
     Indication: Product used for unknown indication
     Dosage: UNK
     Route: 065
  6. MORPHINE [Suspect]
     Active Substance: MORPHINE
     Dosage: UNK(6 OR 7 TABLETS)
     Route: 065
     Dates: start: 20161014, end: 20161014
  7. MORPHINE [Suspect]
     Active Substance: MORPHINE
     Dosage: UNKNOWN
     Route: 065
  8. MORPHINE [Suspect]
     Active Substance: MORPHINE
     Dosage: UNKNOWN
     Route: 065
  9. MORPHINE [Suspect]
     Active Substance: MORPHINE
     Dosage: UNKNOWN
     Route: 065
  10. MORPHINE SULFATE [Suspect]
     Active Substance: MORPHINE SULFATE
     Indication: Product used for unknown indication
     Dosage: 6-7 TABLETS
     Route: 065
     Dates: start: 20161014, end: 20161014
  11. ACETAMINOPHEN [Suspect]
     Active Substance: ACETAMINOPHEN
     Indication: Product used for unknown indication
     Dosage: UNK
     Route: 065
  12. ACETAMINOPHEN [Suspect]
     Active Substance: ACETAMINOPHEN
     Dosage: UNKNOWN
     Route: 065
  13. ACETAMINOPHEN [Suspect]
     Active Substance: ACETAMINOPHEN
     Dosage: UNKNOWN
     Route: 065
  14. ACETAMINOPHEN [Suspect]
     Active Substance: ACETAMINOPHEN
     Dosage: UNKNOWN
     Route: 065
  15. PREGABALIN [Suspect]
     Active Substance: PREGABALIN
     Indication: Product used for unknown indication
     Dosage: 3 DF, TOTAL
     Route: 065
     Dates: start: 20161015, end: 20161015
  16. PREGABALIN [Suspect]
     Active Substance: PREGABALIN
     Indication: Product used for unknown indication
     Dosage: 3 DOSAGE FORM, ONCE/SINGLE (3 DF, TOTAL)
     Route: 065
     Dates: start: 20161015
  17. ACETAMINOPHEN\CODEINE PHOSPHATE [Suspect]
     Active Substance: ACETAMINOPHEN\CODEINE PHOSPHATE
     Indication: Pain
     Dosage: 28 DOSAGE FORM, QD [28 DF, DAILY (112 TABLET, FOR TWO WEEKS]
     Route: 048
  18. ACETAMINOPHEN\CODEINE PHOSPHATE [Suspect]
     Active Substance: ACETAMINOPHEN\CODEINE PHOSPHATE
     Dosage: UNK
     Route: 048
  19. ZOPICLONE [Suspect]
     Active Substance: ZOPICLONE
     Indication: Sleep disorder
     Dosage: 14 DOSAGE FORM (14 DF FOR TWO WEEKS)
     Route: 048
  20. ZOPICLONE [Suspect]
     Active Substance: ZOPICLONE
     Dosage: 14 TABLETS FOR 2 WEEKS
     Route: 048
  21. ZOPICLONE [Suspect]
     Active Substance: ZOPICLONE
     Dosage: 14 TABLETS FOR 2 WEEKS
     Route: 048
  22. ZOPICLONE [Suspect]
     Active Substance: ZOPICLONE
     Dosage: 14 TABLETS FOR 2 WEEKS
     Route: 048
  23. ZOPICLONE [Suspect]
     Active Substance: ZOPICLONE
     Dosage: UNK
     Route: 065

REACTIONS (14)
  - Accidental overdose [Fatal]
  - Accidental overdose [Fatal]
  - Gait disturbance [Fatal]
  - Toxicity to various agents [Fatal]
  - Intentional product misuse [Fatal]
  - Prescription drug used without a prescription [Fatal]
  - Eye pain [Fatal]
  - Dysarthria [Fatal]
  - Drug abuse [Fatal]
  - Pneumonia [Fatal]
  - Vision blurred [Fatal]
  - Drug diversion [Not Recovered/Not Resolved]
  - Eye pain [Not Recovered/Not Resolved]
  - Gait disturbance [Not Recovered/Not Resolved]

NARRATIVE: CASE EVENT DATE: 20161001
